FAERS Safety Report 8845950 (Version 1)
Quarter: 2012Q4

REPORT INFORMATION
  Report Type: 
  Country: US (occurrence: US)
  Receive Date: 20121017
  Receipt Date: 20121017
  Transmission Date: 20130627
  Serious: Yes (Hospitalization)
  Sender: FDA-Public Use
  Company Number: US-ABBOTT-12P-163-0993608-00

PATIENT
  Sex: Male

DRUGS (2)
  1. HUMIRA [Suspect]
     Indication: CROHN^S DISEASE
     Route: 058
     Dates: start: 2009, end: 201206
  2. UNKNOWN MEDICATIONS [Concomitant]
     Indication: CROHN^S DISEASE

REACTIONS (5)
  - Anal fistula [Not Recovered/Not Resolved]
  - Pouchitis [Not Recovered/Not Resolved]
  - Abdominal pain [Unknown]
  - Diarrhoea [Unknown]
  - Crohn^s disease [Not Recovered/Not Resolved]
